FAERS Safety Report 19369115 (Version 2)
Quarter: 2021Q2

REPORT INFORMATION
  Report Type: Spontaneous
  Country: US (occurrence: US)
  Receive Date: 20210603
  Receipt Date: 20210603
  Transmission Date: 20210717
  Serious: No
  Sender: FDA-Public Use
  Company Number: US-SPECGX-T202001853

PATIENT
  Age: 35 Year
  Sex: Male
  Weight: 88 kg

DRUGS (2)
  1. HYDROCODONE/ACETAMINOPHEN [Suspect]
     Active Substance: ACETAMINOPHEN\HYDROCODONE
     Indication: ARTHRALGIA
  2. HYDROCODONE/ACETAMINOPHEN [Suspect]
     Active Substance: ACETAMINOPHEN\HYDROCODONE
     Indication: NECK PAIN
     Dosage: 10/325 MG, FOUR TIMES A DAY
     Route: 048
     Dates: start: 2019, end: 20200912

REACTIONS (6)
  - Headache [Unknown]
  - Dizziness [Unknown]
  - Drug ineffective [Unknown]
  - Abdominal pain upper [Unknown]
  - Balance disorder [Unknown]
  - Tinnitus [Unknown]

NARRATIVE: CASE EVENT DATE: 202007
